FAERS Safety Report 4698774-8 (Version None)
Quarter: 2005Q2

REPORT INFORMATION
  Report Type: 
  Country: None (occurrence: None)
  Receive Date: 20050621
  Receipt Date: 20050307
  Transmission Date: 20051028
  Serious: Yes (Hospitalization)
  Sender: FDA-Public Use
  Company Number: PHEH2004US13386

PATIENT
  Age: 77 Year
  Sex: Male

DRUGS (8)
  1. EXELON [Suspect]
     Indication: DEMENTIA ALZHEIMER'S TYPE
     Dosage: 6 MG, BID, ORAL
     Route: 048
     Dates: start: 20000101, end: 20041212
  2. TOPROL-XL [Concomitant]
  3. PAXIL [Concomitant]
  4. AVANDIA [Concomitant]
  5. ACETYLSALICYLIC ACID SRT [Concomitant]
  6. ZYPREXA [Concomitant]
  7. LIPITOR [Concomitant]
  8. ^XELOTON^ [Concomitant]

REACTIONS (2)
  - ABDOMINAL PAIN [None]
  - TREMOR [None]
